FAERS Safety Report 12313082 (Version 1)
Quarter: 2016Q2

REPORT INFORMATION
  Report Type: Report from Study
  Country: CN (occurrence: CN)
  Receive Date: 20160428
  Receipt Date: 20160428
  Transmission Date: 20160815
  Serious: Yes (Hospitalization)
  Sender: FDA-Public Use
  Company Number: PHHY2016CN054867

PATIENT
  Age: 49 Year
  Sex: Female

DRUGS (1)
  1. TELBIVUDINE [Suspect]
     Active Substance: TELBIVUDINE
     Indication: CHRONIC HEPATITIS B
     Dosage: UNK UNK, QD
     Route: 048
     Dates: start: 20090319

REACTIONS (4)
  - Dysstasia [Unknown]
  - Pain in extremity [Unknown]
  - Gait disturbance [Unknown]
  - Asthenia [Unknown]
